FAERS Safety Report 11412205 (Version 2)
Quarter: 2015Q3

REPORT INFORMATION
  Report Type: Spontaneous
  Country: US (occurrence: US)
  Receive Date: 20150821
  Receipt Date: 20150903
  Transmission Date: 20151125
  Serious: No
  Sender: FDA-Public Use
  Company Number: US-ELI_LILLY_AND_COMPANY-US201203005136

PATIENT
  Sex: Male

DRUGS (6)
  1. HUMULIN R [Suspect]
     Active Substance: INSULIN HUMAN
     Dosage: 10 U, QID
     Dates: start: 20120312
  2. HUMALOG [Suspect]
     Active Substance: INSULIN LISPRO
     Indication: DIABETES MELLITUS
     Dosage: UNK, PRN
     Dates: start: 2000
  3. HUMALOG [Suspect]
     Active Substance: INSULIN LISPRO
     Dosage: 25 U, SINGLE
     Dates: start: 2000
  4. HUMULIN R [Suspect]
     Active Substance: INSULIN HUMAN
     Indication: DIABETES MELLITUS
     Dosage: 12 U, TID
     Dates: start: 201111
  5. HUMULIN R [Suspect]
     Active Substance: INSULIN HUMAN
     Dosage: 15 U, SINGLE
  6. LANTUS [Concomitant]
     Active Substance: INSULIN GLARGINE

REACTIONS (3)
  - Blood glucose increased [Recovered/Resolved]
  - Incorrect product storage [Recovered/Resolved]
  - Medication error [Recovered/Resolved]

NARRATIVE: CASE EVENT DATE: 20120311
